FAERS Safety Report 6971527-3 (Version None)
Quarter: 2010Q3

REPORT INFORMATION
  Report Type: 
  Country: None (occurrence: None)
  Receive Date: 20100908
  Receipt Date: 20100827
  Transmission Date: 20110219
  Serious: Yes (Death)
  Sender: FDA-Public Use
  Company Number: GXKR2010US09783

PATIENT
  Age: 52 Year
  Sex: Female

DRUGS (3)
  1. CEFUROXIME [Suspect]
     Indication: LYME DISEASE
     Dosage: UNK
     Route: 048
     Dates: start: 20091101
  2. DOXYCYCLINE (NGX) [Suspect]
     Indication: LYME DISEASE
     Dosage: UNK
     Route: 065
  3. TELITHROMYCIN [Suspect]
     Indication: LYME DISEASE
     Dosage: UNK
     Route: 048
     Dates: start: 20091101

REACTIONS (6)
  - ABDOMINAL PAIN [None]
  - ASCITES [None]
  - CARDIAC ARREST [None]
  - CLOSTRIDIUM DIFFICILE COLITIS [None]
  - COLECTOMY [None]
  - DIARRHOEA [None]
